FAERS Safety Report 9036764 (Version 1)
Quarter: 2013Q1

REPORT INFORMATION
  Report Type: Spontaneous
  Country: US (occurrence: None)
  Receive Date: 20130118
  Receipt Date: 20130118
  Transmission Date: 20140127
  Serious: Yes (Other)
  Sender: FDA-Public Use
  Company Number: None

PATIENT
  Age: 11 Year
  Sex: Female
  Weight: 35.38 kg

DRUGS (1)
  1. LEXAPRO [Suspect]
     Route: 048
     Dates: start: 20110117

REACTIONS (2)
  - Depressed mood [None]
  - Product substitution issue [None]
